FAERS Safety Report 15268054 (Version 1)
Quarter: 2018Q3

REPORT INFORMATION
  Report Type: Report from Study
  Country: US (occurrence: US)
  Receive Date: 20180812
  Receipt Date: 20180812
  Transmission Date: 20181010
  Serious: Yes (Other)
  Sender: FDA-Public Use
  Company Number: US-BIOGEN-2018BI00618396

PATIENT
  Age: 45 Year
  Sex: Female

DRUGS (1)
  1. AVONEX [Suspect]
     Active Substance: INTERFERON BETA-1A
     Indication: MULTIPLE SCLEROSIS
     Route: 065
     Dates: start: 20021001, end: 2015

REACTIONS (5)
  - Maternal exposure during pregnancy [Recovered/Resolved]
  - Anaesthetic complication [Unknown]
  - Caesarean section [Recovered/Resolved]
  - Multiple sclerosis [Unknown]
  - Migraine [Unknown]

NARRATIVE: CASE EVENT DATE: 201510
